FAERS Safety Report 10031892 (Version 2)
Quarter: 2014Q2

REPORT INFORMATION
  Report Type: Spontaneous
  Country: US (occurrence: US)
  Receive Date: 20140324
  Receipt Date: 20140408
  Transmission Date: 20141212
  Serious: Yes (Hospitalization)
  Sender: FDA-Public Use
  Company Number: US-MYLANLABS-2014S1005845

PATIENT
  Age: 84 Year
  Sex: Female
  Weight: 61.69 kg

DRUGS (14)
  1. METOLAZONE TABLETS, USP [Suspect]
     Indication: FLUID RETENTION
     Route: 048
     Dates: start: 20131210, end: 201401
  2. METOLAZONE TABLETS, USP [Suspect]
     Indication: BLOOD PRESSURE INCREASED
     Route: 048
     Dates: start: 20131210, end: 201401
  3. METOLAZONE TABLETS, USP [Suspect]
     Indication: FLUID RETENTION
     Route: 048
     Dates: start: 201401, end: 2014
  4. METOLAZONE TABLETS, USP [Suspect]
     Indication: BLOOD PRESSURE INCREASED
     Route: 048
     Dates: start: 201401, end: 2014
  5. COUMADIN [Concomitant]
     Indication: ATRIAL FIBRILLATION
     Dosage: TAKE AS DIRECTED.   NOT CONSIDERED AS A SUSPECT TO THE EVENTS. 2MG M,W,F,SAT,SUN 3MG TUES,THURS
     Route: 048
  6. DIGOXIN [Concomitant]
     Indication: ATRIAL FIBRILLATION
     Dosage: NOT CONSIDERED AS A SUSPECT TO THE EVENTS.
     Route: 048
  7. LASIX [Concomitant]
     Indication: FLUID RETENTION
     Dosage: NOT CONSIDERED AS A SUSPECT TO THE EVENTS.
     Route: 048
  8. K-DUR [Concomitant]
     Indication: ELECTROLYTE SUBSTITUTION THERAPY
     Dosage: NOT CONSIDERED AS A SUSPECT TO THE EVENTS.
     Route: 048
  9. AZOR /06230801/ [Concomitant]
     Indication: BLOOD PRESSURE INCREASED
     Dosage: NAME OF DRUG GIVEN:  AZOR   NOT CONSIDERED AS A SUSPECT TO THE EVENTS. 5MG/40MG
     Route: 048
  10. ZOCOR [Concomitant]
     Indication: BLOOD CHOLESTEROL INCREASED
     Dosage: NOT CONSIDERED AS A SUSPECT TO THE EVENTS.
     Route: 048
  11. CLONIDINE [Concomitant]
  12. ASA [Concomitant]
  13. CITRACAL /00751520/ [Concomitant]
  14. MOTRIN [Concomitant]

REACTIONS (21)
  - Abdominal pain [Recovered/Resolved]
  - Weight decreased [Recovered/Resolved]
  - Dehydration [Recovered/Resolved]
  - Confusional state [Recovered/Resolved]
  - Influenza [Recovered/Resolved]
  - International normalised ratio increased [Recovered/Resolved]
  - Activated partial thromboplastin time prolonged [Recovered/Resolved]
  - Prothrombin level increased [Recovered/Resolved]
  - Blood glucose increased [Recovered/Resolved]
  - Blood electrolytes decreased [Recovered/Resolved]
  - Hypokalaemia [Recovered/Resolved]
  - Hyponatraemia [Recovered/Resolved]
  - Hypomagnesaemia [Recovered/Resolved]
  - Dizziness [Recovered/Resolved]
  - Fatigue [Recovered/Resolved]
  - Asthenia [Recovered/Resolved]
  - Nausea [Recovered/Resolved]
  - Decreased appetite [Recovered/Resolved]
  - Decreased appetite [Recovered/Resolved]
  - Oropharyngeal pain [Recovered/Resolved]
  - Malaise [Recovered/Resolved]
